FAERS Safety Report 9024275 (Version 1)
Quarter: 2013Q1

REPORT INFORMATION
  Report Type: Spontaneous
  Country: US (occurrence: US)
  Receive Date: 20130121
  Receipt Date: 20130121
  Transmission Date: 20140127
  Serious: Yes (Hospitalization)
  Sender: FDA-Public Use
  Company Number: PHEH2013US001734

PATIENT
  Sex: Male

DRUGS (1)
  1. SANDIMMUNE [Suspect]
     Indication: STIFF PERSON SYNDROME
     Dosage: 50 MG, QD
     Route: 048

REACTIONS (3)
  - Calcinosis [Unknown]
  - Pain in extremity [Unknown]
  - Musculoskeletal pain [Unknown]
